FAERS Safety Report 6926592-6 (Version None)
Quarter: 2010Q3

REPORT INFORMATION
  Report Type: 
  Country: None (occurrence: None)
  Receive Date: 20100816
  Receipt Date: 20100622
  Transmission Date: 20110219
  Serious: No
  Sender: FDA-Public Use
  Company Number: US-ABBOTT-10P-163-0647333-00

PATIENT
  Sex: Female
  Weight: 58.112 kg

DRUGS (2)
  1. SIMCOR [Suspect]
     Indication: BLOOD TRIGLYCERIDES INCREASED
     Dosage: 1000/40MG DAILY
     Route: 048
     Dates: start: 20100520
  2. ADVIL LIQUI-GELS [Concomitant]
     Indication: PROPHYLAXIS
     Route: 048

REACTIONS (3)
  - ERYTHEMA [None]
  - PAIN [None]
  - PARAESTHESIA [None]
